FAERS Safety Report 10227929 (Version 2)
Quarter: 2014Q2

REPORT INFORMATION
  Report Type: Spontaneous
  Country: US (occurrence: US)
  Receive Date: 20140610
  Receipt Date: 20140611
  Transmission Date: 20141212
  Serious: No
  Sender: FDA-Public Use
  Company Number: US-009507513-1406USA004559

PATIENT
  Sex: Female

DRUGS (1)
  1. COPPERTONE CLEARLY SHEER FOR BEACH AND POOL SPRAY SPF 50 [Suspect]
     Indication: PRODUCT USED FOR UNKNOWN INDICATION
     Dosage: UNK, EVERY 80 MINUTES
     Route: 061

REACTIONS (1)
  - Sunburn [Not Recovered/Not Resolved]
